FAERS Safety Report 19455974 (Version 1)
Quarter: 2021Q2

REPORT INFORMATION
  Report Type: Spontaneous
  Country: CA (occurrence: CA)
  Receive Date: 20210624
  Receipt Date: 20210624
  Transmission Date: 20210717
  Serious: Yes (Hospitalization)
  Sender: FDA-Public Use
  Company Number: CA-ASTRAZENECA-2021A536354

PATIENT
  Age: 70 Year
  Sex: Female
  Weight: 68 kg

DRUGS (15)
  1. DURVALUMAB. [Suspect]
     Active Substance: DURVALUMAB
     Indication: METASTASES TO LYMPH NODES
     Route: 042
     Dates: start: 201705
  2. VITAMIN D [Concomitant]
     Active Substance: VITAMIN D NOS
  3. DURVALUMAB. [Suspect]
     Active Substance: DURVALUMAB
     Indication: METASTASES TO LYMPH NODES
     Route: 042
     Dates: start: 202001
  4. ACETAMINOPHEN. [Concomitant]
     Active Substance: ACETAMINOPHEN
  5. CALCIUM [Concomitant]
     Active Substance: CALCIUM
  6. DURVALUMAB. [Suspect]
     Active Substance: DURVALUMAB
     Indication: SQUAMOUS CELL CARCINOMA
     Route: 042
     Dates: start: 202001
  7. PREDNISONE. [Concomitant]
     Active Substance: PREDNISONE
  8. DURVALUMAB. [Suspect]
     Active Substance: DURVALUMAB
     Indication: METASTASES TO PERITONEUM
     Route: 042
     Dates: start: 202001
  9. ATORVASTATIN [Concomitant]
     Active Substance: ATORVASTATIN
  10. DURVALUMAB. [Suspect]
     Active Substance: DURVALUMAB
     Indication: SQUAMOUS CELL CARCINOMA
     Route: 042
     Dates: start: 201705
  11. CELECOXIB. [Suspect]
     Active Substance: CELECOXIB
     Route: 065
  12. LEVOTHYROXINE. [Concomitant]
     Active Substance: LEVOTHYROXINE
  13. DURVALUMAB. [Suspect]
     Active Substance: DURVALUMAB
     Indication: METASTASES TO PERITONEUM
     Route: 042
     Dates: start: 201705
  14. CLOXACILLIN [Suspect]
     Active Substance: CLOXACILLIN
     Indication: LYMPHADENITIS
     Route: 065
     Dates: start: 202003
  15. PREGABALIN. [Concomitant]
     Active Substance: PREGABALIN

REACTIONS (2)
  - Tubulointerstitial nephritis [Recovered/Resolved]
  - Pemphigoid [Unknown]

NARRATIVE: CASE EVENT DATE: 201909
